FAERS Safety Report 13234751 (Version 1)
Quarter: 2017Q1

REPORT INFORMATION
  Report Type: Spontaneous
  Country: US (occurrence: US)
  Receive Date: 20170214
  Receipt Date: 20170214
  Transmission Date: 20170428
  Serious: Yes (Hospitalization)
  Sender: FDA-Public Use
  Company Number: None

PATIENT
  Age: 54 Year
  Sex: Male
  Weight: 78.4 kg

DRUGS (2)
  1. PREDNISONE. [Suspect]
     Active Substance: PREDNISONE
     Indication: HODGKIN^S DISEASE
     Route: 048
     Dates: start: 20161201
  2. ASPIRIN. [Suspect]
     Active Substance: ASPIRIN
     Indication: THROMBOSIS PROPHYLAXIS
     Route: 048
     Dates: start: 20160811

REACTIONS (1)
  - Haematemesis [None]

NARRATIVE: CASE EVENT DATE: 20170114
